FAERS Safety Report 21592784 (Version 1)
Quarter: 2022Q4

REPORT INFORMATION
  Report Type: Spontaneous
  Country: US (occurrence: US)
  Receive Date: 20221114
  Receipt Date: 20221114
  Transmission Date: 20230112
  Serious: No
  Sender: FDA-Public Use
  Company Number: US-TEVA-2022-US-2820916

PATIENT
  Age: 50 Year
  Sex: Female

DRUGS (1)
  1. AJOVY [Suspect]
     Active Substance: FREMANEZUMAB-VFRM
     Indication: Product used for unknown indication
     Dosage: STRENGTH: 225/1.5 MG/ML
     Route: 065

REACTIONS (4)
  - Injection site pain [Unknown]
  - Drug ineffective [Unknown]
  - Device malfunction [Unknown]
  - Device leakage [Unknown]
